FAERS Safety Report 8540383-4 (Version None)
Quarter: 2012Q3

REPORT INFORMATION
  Report Type: 
  Country: None (occurrence: None)
  Receive Date: 20120726
  Receipt Date: 20120103
  Transmission Date: 20120928
  Serious: No
  Sender: FDA-Public Use
  Company Number: US-ASTRAZENECA-2011SE04737

PATIENT
  Age: 90 Year
  Sex: Female
  Weight: 59 kg

DRUGS (4)
  1. SEROQUEL [Suspect]
     Indication: HALLUCINATION
     Route: 048
     Dates: start: 20110118
  2. SEROQUEL [Suspect]
     Route: 048
  3. GENFORMIN [Concomitant]
     Indication: DIABETES MELLITUS
  4. SEROQUEL [Suspect]
     Route: 048

REACTIONS (2)
  - HALLUCINATION [None]
  - VISUAL ACUITY REDUCED [None]
